FAERS Safety Report 11414650 (Version 3)
Quarter: 2015Q4

REPORT INFORMATION
  Report Type: Spontaneous
  Country: IT (occurrence: IT)
  Receive Date: 20150825
  Receipt Date: 20151201
  Transmission Date: 20160304
  Serious: Yes (Other)
  Sender: FDA-Public Use
  Company Number: IT-AUROBINDO-AUR-APL-2015-07305

PATIENT
  Age: 49 Year
  Sex: Female
  Weight: 58 kg

DRUGS (2)
  1. TEGRETOL [Concomitant]
     Active Substance: CARBAMAZEPINE
     Indication: FRONTAL LOBE EPILEPSY
     Dosage: 500 MG
     Route: 048
     Dates: start: 200609
  2. LEVETIRACETAM 500MG [Suspect]
     Active Substance: LEVETIRACETAM
     Indication: FRONTAL LOBE EPILEPSY
     Dosage: 500 MG DAILY
     Route: 048
     Dates: start: 201410, end: 201504

REACTIONS (3)
  - Epilepsy [Recovering/Resolving]
  - Insomnia [Recovering/Resolving]
  - Sleep phase rhythm disturbance [Recovering/Resolving]

NARRATIVE: CASE EVENT DATE: 201410
